FAERS Safety Report 7605296-0 (Version None)
Quarter: 2011Q3

REPORT INFORMATION
  Report Type: 
  Country: None (occurrence: None)
  Receive Date: 20110705
  Receipt Date: 20110621
  Transmission Date: 20111222
  Serious: Yes (Death)
  Sender: FDA-Public Use
  Company Number: FK201101276

PATIENT
  Age: 14 Year
  Sex: Male

DRUGS (2)
  1. FLUOROURACIL [Suspect]
     Indication: NASOPHARYNGEAL CANCER
     Dosage: 750 MG/M2
  2. CISPLATIN [Concomitant]

REACTIONS (11)
  - CARDIOMEGALY [None]
  - PULMONARY OEDEMA [None]
  - SINUS TACHYCARDIA [None]
  - DIZZINESS [None]
  - HYPOTENSION [None]
  - TACHYPNOEA [None]
  - CONGESTIVE CARDIOMYOPATHY [None]
  - RALES [None]
  - ARRHYTHMIA [None]
  - SUDDEN DEATH [None]
  - FALL [None]
